FAERS Safety Report 8967705 (Version 1)
Quarter: 2012Q4

REPORT INFORMATION
  Report Type: Spontaneous
  Country: JP (occurrence: None)
  Receive Date: 20121210
  Receipt Date: 20121210
  Transmission Date: 20130627
  Serious: Yes (Hospitalization)
  Sender: FDA-Public Use
  Company Number: FK201203698

PATIENT
  Age: 43 Year
  Sex: Female

DRUGS (4)
  1. FLUOROURACIL [Suspect]
     Dosage: 400 mg/m2
  2. FLUOROURACIL [Suspect]
     Dosage: 2400 mg/m2
  3. LEUCOVORIN CALCIUM [Suspect]
     Indication: COLON CANCER
  4. OXALIPLATIN [Suspect]
     Dosage: 85 mg/m2

REACTIONS (5)
  - Posterior reversible encephalopathy syndrome [None]
  - Disease progression [None]
  - Grand mal convulsion [None]
  - Status epilepticus [None]
  - Blood pressure increased [None]
